FAERS Safety Report 14496104 (Version 1)
Quarter: 2018Q1

REPORT INFORMATION
  Report Type: Spontaneous
  Country: BR (occurrence: BR)
  Receive Date: 20180207
  Receipt Date: 20180207
  Transmission Date: 20180509
  Serious: Yes (Hospitalization)
  Sender: FDA-Public Use
  Company Number: BR-TORRENT-00002353

PATIENT
  Age: 35 Year
  Sex: Female
  Weight: 70 kg

DRUGS (2)
  1. LAMITOR [Suspect]
     Active Substance: LAMOTRIGINE
     Indication: BIPOLAR DISORDER
     Dosage: HALF OF A 100MG TABLET DAILY / ORAL
     Dates: start: 20140812, end: 20140822
  2. SERTRALINE HYDROCHLORIDE. [Concomitant]
     Active Substance: SERTRALINE HYDROCHLORIDE
     Indication: ANTIDEPRESSANT THERAPY
     Dosage: ONCE DAILY / ORAL
     Dates: start: 20140812, end: 20140822

REACTIONS (10)
  - Eye swelling [Recovering/Resolving]
  - Skin hypertrophy [Recovering/Resolving]
  - Pruritus generalised [Recovering/Resolving]
  - Off label use [Recovered/Resolved]
  - Rash [Recovering/Resolving]
  - Headache [Recovering/Resolving]
  - Pyrexia [Recovering/Resolving]
  - Dry eye [Recovering/Resolving]
  - Chapped lips [Recovering/Resolving]
  - Lymphadenopathy [Recovering/Resolving]

NARRATIVE: CASE EVENT DATE: 201408
